FAERS Safety Report 5092283-2 (Version None)
Quarter: 2006Q3

REPORT INFORMATION
  Report Type: 
  Country: None (occurrence: None)
  Receive Date: 20060829
  Receipt Date: 20060821
  Transmission Date: 20061208
  Serious: Yes (Congenital Anomaly)
  Sender: FDA-Public Use
  Company Number: US-MERCK-0608USA04736

PATIENT

DRUGS (2)
  1. SINGULAIR [Suspect]
  2. ADVAIR DISKUS 100/50 [Suspect]

REACTIONS (1)
  - CLEFT PALATE [None]
